FAERS Safety Report 19286882 (Version 1)
Quarter: 2021Q2

REPORT INFORMATION
  Report Type: Spontaneous
  Country: US (occurrence: US)
  Receive Date: 20210521
  Receipt Date: 20210521
  Transmission Date: 20210717
  Serious: Yes (Other)
  Sender: FDA-Public Use
  Company Number: US-SA-2021SA169434

PATIENT

DRUGS (4)
  1. POMALIDOMIDE [Suspect]
     Active Substance: POMALIDOMIDE
     Dosage: 2 MG, QD
  2. DEXAMETHASONE. [Suspect]
     Active Substance: DEXAMETHASONE
  3. POMALIDOMIDE [Suspect]
     Active Substance: POMALIDOMIDE
     Dosage: UNK
  4. SARCLISA [Suspect]
     Active Substance: ISATUXIMAB-IRFC

REACTIONS (1)
  - Neutropenia [Unknown]
